FAERS Safety Report 19042396 (Version 1)
Quarter: 2021Q1

REPORT INFORMATION
  Report Type: Spontaneous
  Country: US (occurrence: US)
  Receive Date: 20210323
  Receipt Date: 20210323
  Transmission Date: 20210420
  Serious: No
  Sender: FDA-Public Use
  Company Number: US-GLAXOSMITHKLINE-US2021066299

PATIENT
  Sex: Female

DRUGS (1)
  1. BENLYSTA [Suspect]
     Active Substance: BELIMUMAB
     Indication: SYSTEMIC LUPUS ERYTHEMATOSUS
     Dosage: UNK
     Dates: start: 202011

REACTIONS (5)
  - Neuralgia [Unknown]
  - Speech disorder [Unknown]
  - Eating disorder [Unknown]
  - Mouth ulceration [Not Recovered/Not Resolved]
  - Facial neuralgia [Not Recovered/Not Resolved]
